FAERS Safety Report 6241997-7 (Version None)
Quarter: 2009Q2

REPORT INFORMATION
  Report Type: 
  Country: None (occurrence: None)
  Receive Date: 20090622
  Receipt Date: 20090603
  Transmission Date: 20091009
  Serious: Yes (Death)
  Sender: FDA-Public Use
  Company Number: 2009S1000033

PATIENT
  Sex: Male

DRUGS (1)
  1. INOMAX [Suspect]
     Indication: LUNG TRANSPLANT
     Dates: start: 20070515, end: 20070518

REACTIONS (2)
  - LOSS OF CONSCIOUSNESS [None]
  - OXYGEN SATURATION DECREASED [None]
